FAERS Safety Report 13954354 (Version 2)
Quarter: 2017Q3

REPORT INFORMATION
  Report Type: Spontaneous
  Country: FI (occurrence: FI)
  Receive Date: 20170911
  Receipt Date: 20170912
  Transmission Date: 20171128
  Serious: Yes (Other)
  Sender: FDA-Public Use
  Company Number: ALCN2017FI003083

PATIENT
  Sex: Male

DRUGS (1)
  1. ISOPTO CARPINE [Suspect]
     Active Substance: PILOCARPINE HYDROCHLORIDE
     Indication: ANGLE CLOSURE GLAUCOMA
     Dosage: 1 GTT, TID
     Route: 047

REACTIONS (3)
  - Vision blurred [Unknown]
  - Visual acuity reduced [Not Recovered/Not Resolved]
  - Cataract [Unknown]
